FAERS Safety Report 5027602-6 (Version None)
Quarter: 2006Q2

REPORT INFORMATION
  Report Type: 
  Country: None (occurrence: None)
  Receive Date: 20060616
  Receipt Date: 20060612
  Transmission Date: 20061013
  Serious: Yes (Hospitalization)
  Sender: FDA-Public Use
  Company Number: PL-AVENTIS-200616289GDDC

PATIENT
  Age: 70 Year
  Sex: Female
  Weight: 63 kg

DRUGS (4)
  1. ARAVA [Suspect]
     Indication: RHEUMATOID ARTHRITIS
     Route: 048
     Dates: start: 20050824
  2. PRESTARIUM [Concomitant]
     Indication: HYPERTENSION
     Route: 048
  3. BETALOC ZOK [Concomitant]
     Indication: HYPERTENSION
     Route: 048
  4. ACARD [Concomitant]
     Indication: HYPERTENSION
     Route: 048

REACTIONS (1)
  - MYOCARDIAL INFARCTION [None]
